FAERS Safety Report 6849033-6 (Version None)
Quarter: 2010Q3

REPORT INFORMATION
  Report Type: 
  Country: None (occurrence: None)
  Receive Date: 20100716
  Receipt Date: 20071120
  Transmission Date: 20110219
  Serious: No
  Sender: FDA-Public Use
  Company Number: US-PFIZER INC-2007081606

PATIENT
  Sex: Male
  Weight: 90.909 kg

DRUGS (5)
  1. CHANTIX [Suspect]
     Indication: SMOKING CESSATION THERAPY
     Route: 048
     Dates: start: 20070801, end: 20070925
  2. MULTI-VITAMINS [Concomitant]
     Route: 048
  3. INDERAL [Concomitant]
     Route: 048
  4. LEXAPRO [Concomitant]
     Route: 048
  5. FIBRE, DIETARY [Concomitant]
     Route: 048

REACTIONS (3)
  - ARTHRALGIA [None]
  - DRUG DOSE OMISSION [None]
  - MYALGIA [None]
